FAERS Safety Report 9239936 (Version 7)
Quarter: 2017Q2

REPORT INFORMATION
  Report Type: Spontaneous
  Country: US (occurrence: US)
  Receive Date: 20130418
  Receipt Date: 20170511
  Transmission Date: 20170830
  Serious: Yes (Hospitalization, Other)
  Sender: FDA-Public Use
  Company Number: US-009507513-1304USA007600

PATIENT
  Sex: Female

DRUGS (11)
  1. FOSAMAX [Suspect]
     Active Substance: ALENDRONATE SODIUM
     Indication: OSTEOPENIA
  2. ALENDRONATE SODIUM. [Suspect]
     Active Substance: ALENDRONATE SODIUM
     Indication: OSTEOPENIA
  3. BONIVA [Suspect]
     Active Substance: IBANDRONATE SODIUM
     Indication: OSTEOPENIA
     Dosage: UNK, UNKNOWN
     Route: 065
  4. FOSAMAX [Suspect]
     Active Substance: ALENDRONATE SODIUM
     Indication: OSTEOPOROSIS
     Dosage: 70 MG, QW
     Route: 048
     Dates: start: 200103, end: 20080111
  5. VITAMINS (UNSPECIFIED) [Concomitant]
     Active Substance: VITAMINS
     Indication: ROUTINE HEALTH MAINTENANCE
     Dosage: 1 DF, QD
     Route: 065
  6. ALENDRONATE SODIUM. [Suspect]
     Active Substance: ALENDRONATE SODIUM
     Indication: OSTEOPOROSIS
     Dosage: 70 MG, UNKNOWN
     Route: 048
     Dates: start: 20080404, end: 201007
  7. CALTRATE 600 PLUS D3 PLUS MINERALS [Concomitant]
     Indication: ROUTINE HEALTH MAINTENANCE
     Dosage: 1 DF, QD
     Route: 065
  8. ALENDRONATE SODIUM. [Suspect]
     Active Substance: ALENDRONATE SODIUM
     Indication: OSTEOPENIA
  9. FOSAMAX [Suspect]
     Active Substance: ALENDRONATE SODIUM
     Indication: OSTEOPENIA
  10. FOSAMAX [Suspect]
     Active Substance: ALENDRONATE SODIUM
     Indication: OSTEOPOROSIS
     Dosage: 10 MG, UNKNOWN
     Route: 048
     Dates: start: 20000306, end: 20080111
  11. ALENDRONATE SODIUM. [Suspect]
     Active Substance: ALENDRONATE SODIUM
     Indication: OSTEOPOROSIS
     Dosage: 70 MG, UNKNOWN
     Route: 048
     Dates: start: 201007, end: 201102

REACTIONS (13)
  - Hypothyroidism [Unknown]
  - Vitamin D deficiency [Unknown]
  - Adverse event [Unknown]
  - Osteoarthritis [Unknown]
  - Osteoporosis [Unknown]
  - Muscular weakness [Unknown]
  - Hypercholesterolaemia [Unknown]
  - Impaired healing [Recovering/Resolving]
  - Pulmonary mass [Unknown]
  - Femur fracture [Unknown]
  - Osteoarthritis [Unknown]
  - Hypertension [Unknown]
  - Nausea [Unknown]

NARRATIVE: CASE EVENT DATE: 2011
